FAERS Safety Report 23890198 (Version 1)
Quarter: 2024Q2

REPORT INFORMATION
  Report Type: Spontaneous
  Country: US (occurrence: None)
  Receive Date: 20240521
  Receipt Date: 20240521
  Transmission Date: 20240716
  Serious: Yes (Disabling)
  Sender: FDA-Public Use
  Company Number: None

PATIENT
  Age: 89 Year

DRUGS (1)
  1. BOTOX [Suspect]
     Active Substance: ONABOTULINUMTOXINA
     Indication: Arthralgia

REACTIONS (4)
  - Incorrect dose administered [None]
  - Product administered at inappropriate site [None]
  - Paralysis [None]
  - Dysstasia [None]

NARRATIVE: CASE EVENT DATE: 20210916
